FAERS Safety Report 5463416-0 (Version None)
Quarter: 2007Q3

REPORT INFORMATION
  Report Type: 
  Country: None (occurrence: None)
  Receive Date: 20070920
  Receipt Date: 20070912
  Transmission Date: 20080115
  Serious: Yes (Disabling)
  Sender: FDA-Public Use
  Company Number: JP-AVENTIS-200712440JP

PATIENT
  Age: 44 Year
  Sex: Male

DRUGS (2)
  1. LANTUS [Suspect]
     Route: 058
  2. NOVORAPID [Concomitant]

REACTIONS (4)
  - COGNITIVE DISORDER [None]
  - COMA [None]
  - EXPRESSIVE LANGUAGE DISORDER [None]
  - HYPOGLYCAEMIC ENCEPHALOPATHY [None]
